FAERS Safety Report 7539403-5 (Version None)
Quarter: 2011Q2

REPORT INFORMATION
  Report Type: 
  Country: None (occurrence: None)
  Receive Date: 20110610
  Receipt Date: 20110603
  Transmission Date: 20111010
  Serious: Yes (Death, Hospitalization)
  Sender: FDA-Public Use
  Company Number: US-BAYER-2011-016915

PATIENT
  Sex: Female

DRUGS (6)
  1. LISINOPRIL [Concomitant]
  2. FUROSEMIDE [Concomitant]
  3. XIFAXAN [Concomitant]
  4. SORAFENIB (RAF KINASE INHIBITOR) [Suspect]
     Dosage: 200 MG, BID
  5. SORAFENIB (RAF KINASE INHIBITOR) [Suspect]
     Indication: HEPATIC NEOPLASM MALIGNANT
     Dosage: 400 MG, BID
     Dates: start: 20110205, end: 20110509
  6. CYCLOBENZAPRINE [Concomitant]

REACTIONS (6)
  - MENORRHAGIA [None]
  - HAEMATOCHEZIA [None]
  - BLOOD COUNT ABNORMAL [None]
  - BLOOD PRESSURE INCREASED [None]
  - DEATH [None]
  - CONFUSIONAL STATE [None]
